FAERS Safety Report 6056498-9 (Version None)
Quarter: 2009Q1

REPORT INFORMATION
  Report Type: 
  Country: None (occurrence: None)
  Receive Date: 20090129
  Receipt Date: 20090123
  Transmission Date: 20090719
  Serious: Yes (Hospitalization)
  Sender: FDA-Public Use
  Company Number: PHHY2009JP02701

PATIENT
  Age: 83 Year
  Sex: Male

DRUGS (6)
  1. LAMISIL [Suspect]
     Dosage: UNK
     Route: 048
     Dates: start: 20090108, end: 20090120
  2. ENALAPRIL MALEATE [Concomitant]
     Dosage: 5 MG
     Route: 048
  3. HARNAL [Concomitant]
     Dosage: 0.2 MG
     Route: 048
  4. LASIX [Concomitant]
     Dosage: 20 MG
     Route: 048
  5. SEREVENT [Concomitant]
  6. ALESION [Concomitant]

REACTIONS (2)
  - ERYTHEMA [None]
  - OEDEMA [None]
